FAERS Safety Report 20674907 (Version 1)
Quarter: 2022Q2

REPORT INFORMATION
  Report Type: Spontaneous
  Country: US (occurrence: US)
  Receive Date: 20220405
  Receipt Date: 20220405
  Transmission Date: 20220720
  Serious: Yes (Other)
  Sender: FDA-Public Use
  Company Number: US-ADMA BIOLOGICS INC.-US-2022ADM000013

PATIENT
  Age: 26 Year
  Sex: Female

DRUGS (7)
  1. ASCENIV [Suspect]
     Active Substance: HUMAN IMMUNOGLOBULIN G
     Indication: Myasthenia gravis
     Dosage: 1 G/KG BODY WEIGHT EVERY 4 WEEKS
     Route: 042
  2. ASCENIV [Suspect]
     Active Substance: HUMAN IMMUNOGLOBULIN G
     Dosage: 1 G/KG BODY WEIGHT EVERY 3 WEEKS
     Route: 042
  3. ASCENIV [Suspect]
     Active Substance: HUMAN IMMUNOGLOBULIN G
     Dosage: 1 G/KG BODY WEIGHT EVERY 4 WEEKS
     Route: 042
  4. PYRIDOSTIGMINE [Suspect]
     Active Substance: PYRIDOSTIGMINE
     Indication: Myasthenia gravis
     Dosage: 60 MG, TID
     Route: 065
  5. PREDNISONE [Suspect]
     Active Substance: PREDNISONE
     Indication: Myasthenia gravis
     Dosage: 50 MG, QD
     Route: 065
  6. MESTINON [Suspect]
     Active Substance: PYRIDOSTIGMINE BROMIDE
     Indication: Myasthenia gravis
     Dosage: 60 MG, TID
     Route: 065
  7. MYCOPHENOLIC ACID [Concomitant]
     Active Substance: MYCOPHENOLIC ACID
     Indication: Myasthenia gravis
     Dosage: 1000 MG, BID
     Route: 065

REACTIONS (2)
  - Pulmonary embolism [Unknown]
  - Deep vein thrombosis [Unknown]
